FAERS Safety Report 6504915-X (Version None)
Quarter: 2009Q4

REPORT INFORMATION
  Report Type: 
  Country: None (occurrence: None)
  Receive Date: 20091218
  Receipt Date: 20091209
  Transmission Date: 20100525
  Serious: Yes (Other)
  Sender: FDA-Public Use
  Company Number: FR-ROCHE-674124

PATIENT
  Age: 4 Year
  Sex: Female
  Weight: 14 kg

DRUGS (3)
  1. TAMIFLU [Suspect]
     Indication: INFLUENZA
     Dosage: IN MORNING AND EVENING.
     Route: 048
     Dates: start: 20091126, end: 20091127
  2. PIVALONE [Concomitant]
  3. TOPLEXIL [Concomitant]

REACTIONS (1)
  - ANGIOEDEMA [None]
